FAERS Safety Report 10133024 (Version 2)
Quarter: 2014Q2

REPORT INFORMATION
  Report Type: Spontaneous
  Country: US (occurrence: US)
  Receive Date: 20140428
  Receipt Date: 20140428
  Transmission Date: 20141212
  Serious: Yes (Hospitalization)
  Sender: FDA-Public Use
  Company Number: US-BRACCO-009438

PATIENT
  Age: 31 Year
  Sex: Female

DRUGS (2)
  1. PROHANCE [Suspect]
     Indication: NUCLEAR MAGNETIC RESONANCE IMAGING BRAIN
     Route: 042
     Dates: start: 20130509, end: 20130509
  2. ATIVAN [Suspect]

REACTIONS (3)
  - Syncope [Recovered/Resolved]
  - Pulse absent [Recovered/Resolved]
  - Malaise [Recovered/Resolved]
